FAERS Safety Report 8167154-5 (Version None)
Quarter: 2012Q1

REPORT INFORMATION
  Report Type: 
  Country: None (occurrence: None)
  Receive Date: 20120227
  Receipt Date: 20120221
  Transmission Date: 20120608
  Serious: Yes (Hospitalization)
  Sender: FDA-Public Use
  Company Number: US-ACTELION-A-NJ2012-60989

PATIENT

DRUGS (5)
  1. VIAGRA [Concomitant]
  2. DIGOXIN [Concomitant]
  3. ENALAPRIL MALEATE [Concomitant]
  4. TRACLEER [Suspect]
     Indication: PULMONARY ARTERIAL HYPERTENSION
     Dosage: 31.25 MG, BID
     Route: 048
     Dates: start: 20091020
  5. LASIX [Concomitant]

REACTIONS (2)
  - PYREXIA [None]
  - INFLUENZA [None]
